FAERS Safety Report 23555625 (Version 2)
Quarter: 2024Q1

REPORT INFORMATION
  Report Type: Spontaneous
  Country: AR (occurrence: AR)
  Receive Date: 20240222
  Receipt Date: 20240226
  Transmission Date: 20240410
  Serious: Yes (Death)
  Sender: FDA-Public Use
  Company Number: AR-002147023-NVSC2024AR030147

PATIENT
  Sex: Female

DRUGS (2)
  1. FULVESTRANT [Suspect]
     Active Substance: FULVESTRANT
     Indication: Product used for unknown indication
     Dosage: UNK
     Route: 065
  2. KISQALI [Suspect]
     Active Substance: RIBOCICLIB
     Indication: Breast cancer metastatic
     Dosage: 600 MG (FOR 21 DAYS, EVERY 28 DAYS)
     Route: 048
     Dates: start: 20230721

REACTIONS (4)
  - Malignant neoplasm progression [Fatal]
  - Respiratory failure [Fatal]
  - Breast cancer metastatic [Fatal]
  - Pneumonia [Fatal]
